FAERS Safety Report 23398189 (Version 2)
Quarter: 2024Q1

REPORT INFORMATION
  Report Type: Spontaneous
  Country: SE (occurrence: None)
  Receive Date: 20240112
  Receipt Date: 20240118
  Transmission Date: 20240410
  Serious: Yes (Other)
  Sender: FDA-Public Use
  Company Number: 2024A003123

PATIENT
  Age: 42 Year
  Sex: Male

DRUGS (4)
  1. GEFITINIB [Suspect]
     Active Substance: GEFITINIB
     Indication: Lung adenocarcinoma stage IV
     Route: 048
  2. OSIMERTINIB [Suspect]
     Active Substance: OSIMERTINIB
     Indication: Lung adenocarcinoma stage IV
     Route: 048
  3. PEMETREXED [Concomitant]
     Active Substance: PEMETREXED
     Indication: Lung adenocarcinoma stage IV
     Dosage: FOUR CYCLES OF 800 MG
  4. CISPLATIN [Concomitant]
     Active Substance: CISPLATIN
     Indication: Lung adenocarcinoma stage IV
     Dosage: FOUR CYCLES OF 40 MG

REACTIONS (6)
  - Malignant neoplasm progression [Unknown]
  - Drug resistance [Unknown]
  - Metastases to lung [Unknown]
  - Acquired gene mutation [Unknown]
  - Malignant mediastinal neoplasm [Unknown]
  - Drug resistance mutation [Unknown]
